FAERS Safety Report 8417606-5 (Version None)
Quarter: 2012Q2

REPORT INFORMATION
  Report Type: 
  Country: None (occurrence: None)
  Receive Date: 20120606
  Receipt Date: 20120529
  Transmission Date: 20120825
  Serious: Yes (Other)
  Sender: FDA-Public Use
  Company Number: US-ROCHE-1073541

PATIENT
  Sex: Female
  Weight: 52.21 kg

DRUGS (4)
  1. ADVAIR DISKUS 100/50 [Concomitant]
  2. VENTOLIN [Concomitant]
  3. PROTONIX [Concomitant]
  4. OMALIZUMAB [Suspect]
     Indication: ASTHMA
     Route: 058
     Dates: start: 20090101, end: 20100101

REACTIONS (1)
  - BENIGN BREAST NEOPLASM [None]
